FAERS Safety Report 8000923-0 (Version None)
Quarter: 2011Q4

REPORT INFORMATION
  Report Type: 
  Country: None (occurrence: None)
  Receive Date: 20111222
  Receipt Date: 20111213
  Transmission Date: 20120403
  Serious: Yes (Hospitalization)
  Sender: FDA-Public Use
  Company Number: US-BAYER-200942432NA

PATIENT
  Age: 41 Year
  Sex: Female
  Weight: 63.492 kg

DRUGS (18)
  1. FERROUS SULFATE TAB [Concomitant]
     Dosage: 325 MG, UNK
     Route: 048
     Dates: start: 20090507
  2. YAZ [Suspect]
     Indication: CONTRACEPTION
     Dosage: 1 DF (DAILY DOSE), QD, ORAL
     Route: 048
     Dates: start: 20090728, end: 20091009
  3. YAZ [Suspect]
     Indication: PREMENSTRUAL SYNDROME
  4. DECADRON [Concomitant]
     Dosage: 4 MG, UNK
     Route: 042
     Dates: start: 20090917
  5. DILAUDID [Concomitant]
     Dosage: 0.4 MG, UNK
     Route: 042
     Dates: start: 20090917
  6. HYDROCODONE BITARTRATE AND ACETAMINOPHEN [Concomitant]
     Indication: PAIN
     Dosage: EVERY 4 TO 6 HOURS AS NEEDED
     Dates: start: 20090917
  7. ZOFRAN [Concomitant]
     Indication: NAUSEA
     Dosage: 4 MG, PRN
     Route: 042
     Dates: start: 20090917
  8. REGLAN [Concomitant]
     Dosage: 10 MG, UNK
     Route: 042
     Dates: start: 20090917
  9. DEMEROL [Concomitant]
     Indication: CHILLS
     Dosage: 0.5 MG, Q 5 MINUTES FOR 6 HOURS PRN (INTERPRETED AS EVERY 5 MINUTES AS NEEDED)
     Route: 042
     Dates: start: 20090917
  10. TORADOL [Concomitant]
     Dosage: 30 MG, UNK
     Route: 042
     Dates: start: 20090917
  11. FENTANYL [Concomitant]
     Dosage: UNK
     Route: 042
     Dates: start: 20090917
  12. LACTATED RINGER'S [Concomitant]
     Dosage: UNK
     Route: 042
     Dates: start: 20090917
  13. VERSED [Concomitant]
     Dosage: 2 MG, UNK
     Route: 042
     Dates: start: 20090919
  14. YAZ [Suspect]
  15. NAPROXEN [Concomitant]
     Dosage: 550 MG,1 TABLET EVERY 6 HOURS AS NEEDED
     Dates: start: 20090930
  16. DEFECIT 250/600 [Concomitant]
     Dosage: UNK
     Route: 042
     Dates: start: 20090917
  17. CIPROFLOXACIN [Concomitant]
     Dosage: 500 MG, 1 TABLET FOR 7 DAYS
     Dates: start: 20090930
  18. ZOFRAN [Concomitant]
     Indication: VOMITING

REACTIONS (3)
  - PULMONARY EMBOLISM [None]
  - DEEP VEIN THROMBOSIS [None]
  - INJURY [None]
